FAERS Safety Report 13453197 (Version 1)
Quarter: 2017Q2

REPORT INFORMATION
  Report Type: Not Available
  Country: US (occurrence: US)
  Receive Date: 20170418
  Receipt Date: 20170418
  Transmission Date: 20170830
  Serious: No
  Sender: FDA-Public Use
  Company Number: US-ANIPHARMA-2016-US-005494

PATIENT
  Age: 60 Year
  Sex: Female

DRUGS (1)
  1. INDERAL LA [Suspect]
     Active Substance: PROPRANOLOL HYDROCHLORIDE
     Dosage: UNKNOWN
     Route: 065

REACTIONS (1)
  - Dry skin [Unknown]
